FAERS Safety Report 8427711-5 (Version None)
Quarter: 2012Q2

REPORT INFORMATION
  Report Type: 
  Country: None (occurrence: None)
  Receive Date: 20120611
  Receipt Date: 20120531
  Transmission Date: 20120825
  Serious: Yes (Other)
  Sender: FDA-Public Use
  Company Number: US-ASTRAZENECA-2012SE36731

PATIENT
  Age: 46 Year
  Sex: Female

DRUGS (14)
  1. WELLBUTRIN [Concomitant]
     Route: 048
  2. MAGNESIUM [Concomitant]
     Dosage: 500 MG
     Route: 048
  3. SEROQUEL [Suspect]
     Route: 048
  4. POLYETHYLENE GLYCOL [Concomitant]
     Dosage: 3350 POLID
  5. SUPER B COMPLEX [Concomitant]
  6. ULTRANUTRIENT [Concomitant]
     Route: 048
  7. VITAMIN D [Concomitant]
     Dosage: 4000
     Route: 048
  8. MULTI-VITAMIN [Concomitant]
  9. CALCIUM [Concomitant]
     Route: 048
  10. IRON [Concomitant]
     Route: 048
  11. GABAPENTIN [Concomitant]
     Route: 048
  12. SEROQUEL [Suspect]
     Route: 048
  13. LAMICTAL [Concomitant]
     Route: 048
  14. EPA/DHA [Concomitant]
     Dosage: SOFTGEL

REACTIONS (2)
  - PAIN [None]
  - INTERVERTEBRAL DISC PROTRUSION [None]
